FAERS Safety Report 12235290 (Version 1)
Quarter: 2016Q2

REPORT INFORMATION
  Report Type: Spontaneous
  Country: SI (occurrence: SI)
  Receive Date: 20160404
  Receipt Date: 20160404
  Transmission Date: 20160815
  Serious: Yes (Other)
  Sender: FDA-Public Use
  Company Number: SI-BAYER-2016-060095

PATIENT
  Sex: Female

DRUGS (2)
  1. ACETYLSALICYLIC ACID({=100 MG) [Suspect]
     Active Substance: ASPIRIN
     Indication: PRE-ECLAMPSIA
     Dosage: UNK
  2. METHYLDOPA. [Concomitant]
     Active Substance: METHYLDOPA
     Indication: PRE-ECLAMPSIA

REACTIONS (4)
  - Foetal death [None]
  - Off label use [None]
  - Haematoma [None]
  - Maternal exposure during pregnancy [None]
